FAERS Safety Report 4839728-8 (Version None)
Quarter: 2005Q4

REPORT INFORMATION
  Report Type: 
  Country: None (occurrence: None)
  Receive Date: 20051129
  Receipt Date: 20050718
  Transmission Date: 20060501
  Serious: No
  Sender: FDA-Public Use
  Company Number: US-GLAXOSMITHKLINE-A0566683A

PATIENT
  Age: 38 Year
  Sex: Male

DRUGS (6)
  1. WELLBUTRIN SR [Suspect]
     Dosage: 150MG TWICE PER DAY
     Route: 048
     Dates: start: 20050629, end: 20050712
  2. LIPITOR [Concomitant]
  3. LORATADINE [Concomitant]
  4. ALLEGRA [Concomitant]
  5. OMNICEF [Concomitant]
  6. ANTIBIOTIC [Concomitant]
     Indication: UPPER RESPIRATORY TRACT INFECTION

REACTIONS (4)
  - DYSGEUSIA [None]
  - HEADACHE [None]
  - PHARYNGEAL OEDEMA [None]
  - PHARYNGOLARYNGEAL PAIN [None]
